FAERS Safety Report 23219421 (Version 1)
Quarter: 2023Q4

REPORT INFORMATION
  Report Type: Report from Study
  Country: PR (occurrence: PR)
  Receive Date: 20231122
  Receipt Date: 20231122
  Transmission Date: 20240109
  Serious: Yes (Other)
  Sender: FDA-Public Use
  Company Number: PR-ABBVIE-5500306

PATIENT
  Sex: Female
  Weight: 82 kg

DRUGS (14)
  1. RINVOQ [Suspect]
     Active Substance: UPADACITINIB
     Indication: Product used for unknown indication
     Route: 048
     Dates: start: 20230313
  2. CYMBALTA [Concomitant]
     Active Substance: DULOXETINE HYDROCHLORIDE
     Indication: Product used for unknown indication
     Dosage: START DATE TEXT: UNKNOWN?DULOXETINE
  3. PREDNISONE [Concomitant]
     Active Substance: PREDNISONE
     Indication: Product used for unknown indication
     Dosage: START DATE TEXT: UNKNOWN
  4. ULTRACET [Concomitant]
     Active Substance: ACETAMINOPHEN\TRAMADOL HYDROCHLORIDE
     Indication: Product used for unknown indication
     Dosage: 37.5-325?TRAMADOL/ACETAMINOPHEN?START DATE TEXT: UNKNOWN
  5. LIDODERM [Concomitant]
     Active Substance: LIDOCAINE
     Indication: Product used for unknown indication
     Dosage: LIDOCAINE?START DATE TEXT: UNKNOWN
  6. ZOFRAN [Concomitant]
     Active Substance: ONDANSETRON HYDROCHLORIDE
     Indication: Product used for unknown indication
     Dosage: ONDANSETRON?START DATE TEXT: UNKNOWN
  7. CARDIZEM [Concomitant]
     Active Substance: DILTIAZEM HYDROCHLORIDE
     Indication: Product used for unknown indication
     Dosage: DILTIAZEM ?START DATE TEXT: UNKNOWN
  8. NEURONTIN [Concomitant]
     Active Substance: GABAPENTIN
     Indication: Product used for unknown indication
     Dosage: START DATE TEXT: UNKNOWN
  9. CARAFATE [Concomitant]
     Active Substance: SUCRALFATE
     Indication: Product used for unknown indication
     Dosage: SUCRALFATE?START DATE TEXT: UNKNOWN
  10. RELPAX [Concomitant]
     Active Substance: ELETRIPTAN HYDROBROMIDE
     Indication: Product used for unknown indication
     Dosage: ELETRIPTAN?START DATE TEXT: UNKNOWN
  11. BREO ELLIPTA [Concomitant]
     Active Substance: FLUTICASONE FUROATE\VILANTEROL TRIFENATATE
     Indication: Product used for unknown indication
     Dosage: 100-25MG?FLUTICASONE FUROATE/VILANTEROL ?START DATE TEXT: UNKNOWN
  12. BACLOFEN [Concomitant]
     Active Substance: BACLOFEN
     Indication: Product used for unknown indication
     Dosage: START DATE TEXT: UNKNOWN
  13. SINGULAIR [Concomitant]
     Active Substance: MONTELUKAST SODIUM
     Indication: Product used for unknown indication
     Dosage: MONTELUKAST?START DATE TEXT: UNKNOWN
  14. PEPCID [Concomitant]
     Active Substance: FAMOTIDINE
     Indication: Product used for unknown indication
     Dosage: FAMOTIDINE?START DATE TEXT: UNKNOWN

REACTIONS (1)
  - Sacroiliitis [Recovering/Resolving]
